FAERS Safety Report 8133165-9 (Version None)
Quarter: 2012Q1

REPORT INFORMATION
  Report Type: 
  Country: None (occurrence: None)
  Receive Date: 20120213
  Receipt Date: 20120209
  Transmission Date: 20120608
  Serious: No
  Sender: FDA-Public Use
  Company Number: PHHY2012IN009717

PATIENT
  Age: 79 Year
  Sex: Female

DRUGS (6)
  1. CLIPTO [Concomitant]
     Dosage: 150 MG,
  2. CARDIOVAS [Concomitant]
     Indication: BLOOD PRESSURE
     Dosage: UNK UKN, UNK
  3. VALENTAC [Concomitant]
     Dosage: 80 MG, UNK
  4. ANTIHYPERTENSIVES [Concomitant]
  5. TONACT PLUS [Concomitant]
     Indication: BLOOD PRESSURE
     Dosage: UNK UKN, UNK
  6. TASIGNA [Suspect]
     Indication: CHRONIC MYELOID LEUKAEMIA
     Dosage: 400 MG, BID
     Route: 048

REACTIONS (1)
  - BLOOD GLUCOSE INCREASED [None]
